FAERS Safety Report 18660905 (Version 1)
Quarter: 2020Q4

REPORT INFORMATION
  Report Type: Spontaneous
  Country: NO (occurrence: NO)
  Receive Date: 20201224
  Receipt Date: 20201224
  Transmission Date: 20210114
  Serious: Yes (Other)
  Sender: FDA-Public Use
  Company Number: NO-ASTRAZENECA-2020SF69544

PATIENT
  Age: 32 Year
  Sex: Female
  Weight: 53 kg

DRUGS (3)
  1. SEROQUEL [Suspect]
     Active Substance: QUETIAPINE FUMARATE
     Indication: SLEEP DISORDER
     Dosage: PATIENT USES 100 X 2 MG200.0MG UNKNOWN
     Route: 048
     Dates: start: 20200801, end: 20201118
  2. OMEGA 3 [Concomitant]
     Active Substance: OMEGA-3 FATTY ACIDS
  3. VITAMIN B [Concomitant]
     Active Substance: VITAMIN B

REACTIONS (4)
  - Paralysis [Not Recovered/Not Resolved]
  - Tremor [Not Recovered/Not Resolved]
  - Syncope [Unknown]
  - Dizziness [Not Recovered/Not Resolved]

NARRATIVE: CASE EVENT DATE: 20200901
